FAERS Safety Report 15098350 (Version 1)
Quarter: 2018Q2

REPORT INFORMATION
  Report Type: Spontaneous
  Country: US (occurrence: US)
  Receive Date: 20180611
  Receipt Date: 20180611
  Transmission Date: 20180711
  Serious: No
  Sender: FDA-Public Use
  Company Number: None

PATIENT
  Age: 64 Year
  Sex: Male
  Weight: 83.25 kg

DRUGS (9)
  1. ATORVASTATIN [Concomitant]
     Active Substance: ATORVASTATIN
  2. VITAMIN D-2 SUPPLEMENT [Concomitant]
  3. AMLODIPINE BESALATE [Concomitant]
  4. OMEGA 3 [Suspect]
     Active Substance: OMEGA-3 FATTY ACIDS
  5. LOSARTAN. [Concomitant]
     Active Substance: LOSARTAN
  6. CEFUROXIME 500MG TABLETS LUPIN [Suspect]
     Active Substance: CEFUROXIME
     Indication: BIOPSY
     Dosage: ?          QUANTITY:1 TABLET(S);?
     Route: 048
     Dates: start: 20180610, end: 20180610
  7. MULTIVITAMIN [Concomitant]
     Active Substance: VITAMINS
  8. VITAMIN B12 SUPPLEMENT [Concomitant]
  9. ALLOPURINOL. [Concomitant]
     Active Substance: ALLOPURINOL

REACTIONS (3)
  - Diarrhoea [None]
  - Vomiting [None]
  - Malaise [None]

NARRATIVE: CASE EVENT DATE: 20180610
